FAERS Safety Report 12413402 (Version 4)
Quarter: 2016Q3

REPORT INFORMATION
  Report Type: Spontaneous
  Country: DE (occurrence: DE)
  Receive Date: 20160527
  Receipt Date: 20160923
  Transmission Date: 20161109
  Serious: Yes (Hospitalization)
  Sender: FDA-Public Use
  Company Number: DE-MYLANLABS-2016M1021632

PATIENT

DRUGS (2)
  1. MONTELUKAST [Suspect]
     Active Substance: MONTELUKAST SODIUM
     Indication: ASTHMA
     Dosage: UNK
  2. OMALIZUMAB [Suspect]
     Active Substance: OMALIZUMAB
     Indication: ASTHMA
     Dosage: UNK

REACTIONS (6)
  - Arrhythmia supraventricular [Recovered/Resolved]
  - Eosinophilic granulomatosis with polyangiitis [Recovered/Resolved]
  - Pulmonary function test decreased [Recovered/Resolved]
  - Endocarditis fibroplastica [Recovered/Resolved]
  - Myocarditis [Recovered/Resolved]
  - Hypereosinophilic syndrome [Recovered/Resolved]

NARRATIVE: CASE EVENT DATE: 20160418
